FAERS Safety Report 21723016 (Version 1)
Quarter: 2022Q4

REPORT INFORMATION
  Report Type: Spontaneous
  Country: PL (occurrence: PL)
  Receive Date: 20221213
  Receipt Date: 20221213
  Transmission Date: 20230112
  Serious: No
  Sender: FDA-Public Use
  Company Number: PL-BAXTER-2022BAX026687

PATIENT
  Sex: Male

DRUGS (2)
  1. SODIUM CHLORIDE [Suspect]
     Active Substance: SODIUM CHLORIDE
     Indication: Medication dilution
     Dosage: VIA FOLFUSOR LV 5 ML PER HOUR INFUSOR
     Route: 065
     Dates: start: 202206
  2. FLUOROURACIL SODIUM [Suspect]
     Active Substance: FLUOROURACIL SODIUM
     Dosage: VIA FOLFUSOR LV 5 ML PER HOUR INFUSOR
     Route: 065
     Dates: start: 202206

REACTIONS (4)
  - Malaise [Unknown]
  - Abdominal pain [Unknown]
  - Dizziness [Unknown]
  - Incorrect drug administration rate [Unknown]
